FAERS Safety Report 25723165 (Version 1)
Quarter: 2025Q3

REPORT INFORMATION
  Report Type: Spontaneous
  Country: US (occurrence: US)
  Receive Date: 20250825
  Receipt Date: 20250825
  Transmission Date: 20251020
  Serious: Yes (Other)
  Sender: BRISTOL-MYERS SQUIBB COMPANY
  Company Number: US-BRISTOL-MYERS SQUIBB COMPANY-2025-117582

PATIENT
  Age: 78 Year
  Sex: Female

DRUGS (2)
  1. POMALYST [Suspect]
     Active Substance: POMALIDOMIDE
     Indication: Cardiovascular disorder
     Dosage: FREQUENCY: TAKE 1 CAPSULE BY MOUTH EVERY MORNING ON DAYS 1-21 THEN TAKE 1?WEEK OFF FOR A 28 DAY CYCL
     Route: 048
  2. POMALYST [Suspect]
     Active Substance: POMALIDOMIDE
     Indication: Respiratory disorder

REACTIONS (1)
  - Pulmonary thrombosis [Recovering/Resolving]
